FAERS Safety Report 18263814 (Version 5)
Quarter: 2021Q1

REPORT INFORMATION
  Report Type: Report from Study
  Country: US (occurrence: US)
  Receive Date: 20200914
  Receipt Date: 20210323
  Transmission Date: 20210419
  Serious: Yes (Other)
  Sender: FDA-Public Use
  Company Number: US-MYLANLABS-2020M1078362

PATIENT
  Age: 61 Year
  Sex: Male
  Weight: 83 kg

DRUGS (3)
  1. GLATIRAMER ACETATE INJECTION [Suspect]
     Active Substance: GLATIRAMER ACETATE
     Dosage: 40 MILLIGRAM
  2. DALFAMPRIDINE. [Concomitant]
     Active Substance: DALFAMPRIDINE
     Dosage: UNK
  3. GLATIRAMER ACETATE INJECTION [Suspect]
     Active Substance: GLATIRAMER ACETATE
     Indication: MULTIPLE SCLEROSIS
     Dosage: 40 MILLIGRAM, 3XW
     Dates: start: 201812, end: 202009

REACTIONS (8)
  - Nausea [Recovered/Resolved]
  - Chest injury [Unknown]
  - Brain contusion [Unknown]
  - Pneumothorax [Unknown]
  - Pelvic pain [Recovered/Resolved]
  - Injection site pain [Recovered/Resolved]
  - Fall [Unknown]
  - Inappropriate schedule of product administration [Unknown]

NARRATIVE: CASE EVENT DATE: 2020
